FAERS Safety Report 8458691-4 (Version None)
Quarter: 2012Q2

REPORT INFORMATION
  Report Type: 
  Country: None (occurrence: None)
  Receive Date: 20120615
  Receipt Date: 20120606
  Transmission Date: 20120825
  Serious: Yes (Hospitalization)
  Sender: FDA-Public Use
  Company Number: 2012-2297

PATIENT
  Age: 13 Year
  Sex: Male
  Weight: 31.7 kg

DRUGS (2)
  1. INCRELEX [Suspect]
     Indication: OFF LABEL USE
     Dosage: 24 UNITS (12 UNITS, 2 IN 1 D), SUBCUTANEOUS
     Route: 058
     Dates: start: 20120509, end: 20120517
  2. INCRELEX [Suspect]
     Indication: GROWTH HORMONE DEFICIENCY
     Dosage: 24 UNITS (12 UNITS, 2 IN 1 D), SUBCUTANEOUS
     Route: 058
     Dates: start: 20120509, end: 20120517

REACTIONS (8)
  - ASTHENIA [None]
  - NASAL CONGESTION [None]
  - PYREXIA [None]
  - CHEST PAIN [None]
  - DYSPNOEA [None]
  - FATIGUE [None]
  - RHINORRHOEA [None]
  - OFF LABEL USE [None]
